FAERS Safety Report 21393659 (Version 1)
Quarter: 2022Q3

REPORT INFORMATION
  Report Type: Spontaneous
  Country: US (occurrence: None)
  Receive Date: 20220928
  Receipt Date: 20220928
  Transmission Date: 20221026
  Serious: Yes (Hospitalization)
  Sender: FDA-Public Use
  Company Number: None

PATIENT
  Age: 71 Year
  Sex: Female
  Weight: 56.7 kg

DRUGS (17)
  1. CAPECITABINE [Suspect]
     Active Substance: CAPECITABINE
     Indication: Breast cancer female
     Dosage: FREQUENCY : TWICE A DAY;?
     Route: 048
  2. ACETAMINOPHEN [Concomitant]
  3. ANASTROZOLE [Concomitant]
  4. BUSPAR [Concomitant]
  5. CALCIUM [Concomitant]
  6. DILTIAZEM [Concomitant]
  7. FAMOTIDINE [Concomitant]
  8. IBUPROFEN [Concomitant]
  9. LORAZEPAM [Concomitant]
  10. MULTIVITAMINS [Concomitant]
  11. POTASSIUM CHLORIDE [Concomitant]
  12. PRAVASTATIN [Concomitant]
  13. PROCHLORERAZINE [Concomitant]
  14. VENLAFAXINE [Concomitant]
  15. VITAMIN B COMPLEX [Concomitant]
  16. VITAMIN D3 [Concomitant]
  17. WELLBUTRIN [Concomitant]

REACTIONS (1)
  - Overdose [None]
